FAERS Safety Report 6405894-6 (Version None)
Quarter: 2009Q4

REPORT INFORMATION
  Report Type: 
  Country: None (occurrence: None)
  Receive Date: 20091016
  Receipt Date: 20091016
  Transmission Date: 20100525
  Serious: Yes (Other)
  Sender: FDA-Public Use
  Company Number: None

PATIENT
  Age: 7 Year
  Sex: Male
  Weight: 21.7727 kg

DRUGS (2)
  1. SINGULAIR [Suspect]
     Indication: ASTHMA
     Dosage: 5MG 1 PO QD PO
     Route: 048
     Dates: start: 20080612, end: 20091010
  2. SINGULAIR [Suspect]
     Indication: RHINITIS ALLERGIC
     Dosage: 5MG 1 PO QD PO
     Route: 048
     Dates: start: 20080612, end: 20091010

REACTIONS (8)
  - AGITATION [None]
  - CRYING [None]
  - ECZEMA [None]
  - FEAR [None]
  - MUSCLE TWITCHING [None]
  - NIGHTMARE [None]
  - PSYCHOMOTOR HYPERACTIVITY [None]
  - TREMOR [None]
